FAERS Safety Report 13915514 (Version 1)
Quarter: 2017Q3

REPORT INFORMATION
  Report Type: Spontaneous
  Country: US (occurrence: US)
  Receive Date: 20170828
  Receipt Date: 20170828
  Transmission Date: 20171127
  Serious: Yes (Hospitalization)
  Sender: FDA-Public Use
  Company Number: None

PATIENT
  Age: 26 Year
  Sex: Male
  Weight: 44.1 kg

DRUGS (22)
  1. INSULIN LISPRO [Concomitant]
     Active Substance: INSULIN LISPRO
  2. VALGANCICLOVIR. [Concomitant]
     Active Substance: VALGANCICLOVIR
  3. TACROLIMUS. [Concomitant]
     Active Substance: TACROLIMUS
  4. CALCIUM [Concomitant]
     Active Substance: CALCIUM
  5. PREDNISONE. [Suspect]
     Active Substance: PREDNISONE
  6. ETHAMBUTOL [Concomitant]
     Active Substance: ETHAMBUTOL HYDROCHLORIDE
  7. URSODIOL. [Concomitant]
     Active Substance: URSODIOL
  8. MACITENTAN [Suspect]
     Active Substance: MACITENTAN
     Indication: LUNG TRANSPLANT
     Route: 048
     Dates: start: 20170701, end: 20170725
  9. CHOLECALCIFEROL [Concomitant]
     Active Substance: CHOLECALCIFEROL
  10. VITAMIN A [Concomitant]
     Active Substance: VITAMIN A
  11. ASCORBIC ACID. [Concomitant]
     Active Substance: ASCORBIC ACID
  12. INSULIN GLARGINE [Concomitant]
     Active Substance: INSULIN GLARGINE
  13. CLOTRIMAZOLE. [Concomitant]
     Active Substance: CLOTRIMAZOLE
  14. ASPARIN [Concomitant]
  15. MAGNESIUM OXIDE. [Concomitant]
     Active Substance: MAGNESIUM OXIDE
  16. PANCRELIPASE. [Concomitant]
     Active Substance: PANCRELIPASE
  17. PANTOPRAZOLE [Concomitant]
     Active Substance: PANTOPRAZOLE
  18. MULTIVITAMIN [Concomitant]
     Active Substance: VITAMINS
  19. FERROUS SULFATE. [Concomitant]
     Active Substance: FERROUS SULFATE
  20. MYCOPHENOLATE [Concomitant]
     Active Substance: MYCOPHENOLIC ACID
  21. VITAMIN E [Concomitant]
     Active Substance: .ALPHA.-TOCOPHEROL
  22. AZYTHROMICIN [Concomitant]

REACTIONS (1)
  - Infection [None]

NARRATIVE: CASE EVENT DATE: 20170725
